FAERS Safety Report 11025450 (Version 1)
Quarter: 2015Q2

REPORT INFORMATION
  Report Type: Spontaneous
  Country: US (occurrence: None)
  Receive Date: 20150413
  Receipt Date: 20150413
  Transmission Date: 20150821
  Serious: Yes (Other)
  Sender: FDA-Public Use
  Company Number: None

PATIENT
  Age: 60 Year
  Sex: Male
  Weight: 87.1 kg

DRUGS (1)
  1. ISOVUE 300 [Suspect]
     Active Substance: IOPAMIDOL
     Indication: SCAN WITH CONTRAST
     Route: 042
     Dates: start: 20150204

REACTIONS (1)
  - Contrast media allergy [None]

NARRATIVE: CASE EVENT DATE: 20150204
